FAERS Safety Report 9197019 (Version 1)
Quarter: 2013Q1

REPORT INFORMATION
  Report Type: Spontaneous
  Country: US (occurrence: None)
  Receive Date: 20120709
  Receipt Date: 20120709
  Transmission Date: 20140127
  Serious: Yes (Other)
  Sender: FDA-Public Use
  Company Number: PHEH2012US001530

PATIENT
  Age: 62 Year
  Sex: Male

DRUGS (3)
  1. GLEEVEC [Suspect]
     Dosage: 400 MG, UNK
  2. KLONOPIN (CLONAZEPAM) (TABLETS) [Concomitant]
  3. LOMOTIL (ATROPINE SULFATE, DIPHENOXYLATE HYDROCHLORIDE) [Concomitant]

REACTIONS (4)
  - Rectal haemorrhage [None]
  - Diarrhoea [None]
  - Bone pain [None]
  - Contusion [None]
